FAERS Safety Report 22071543 (Version 1)
Quarter: 2023Q1

REPORT INFORMATION
  Report Type: Report from Study
  Country: None (occurrence: ES)
  Receive Date: 20230307
  Receipt Date: 20230307
  Transmission Date: 20230417
  Serious: No
  Sender: FDA-Public Use
  Company Number: ES-Nephron Pharmaceuticals Corporation-2138801

PATIENT
  Age: 60 Year
  Sex: Female

DRUGS (5)
  1. SODIUM CHLORIDE [Suspect]
     Active Substance: SODIUM CHLORIDE
  2. ALBENDAZOLE [Concomitant]
     Active Substance: ALBENDAZOLE
  3. EPINEPHRINE [Concomitant]
     Active Substance: EPINEPHRINE
  4. METHYLPREDNISOLONE [Concomitant]
     Active Substance: METHYLPREDNISOLONE
  5. DEXCHLORPHENIRAMINE MALEATE [Concomitant]
     Active Substance: DEXCHLORPHENIRAMINE MALEATE

REACTIONS (1)
  - Hypernatraemia [Recovering/Resolving]
